FAERS Safety Report 21365992 (Version 1)
Quarter: 2022Q3

REPORT INFORMATION
  Report Type: Spontaneous
  Country: CH (occurrence: CH)
  Receive Date: 20220922
  Receipt Date: 20220922
  Transmission Date: 20221027
  Serious: Yes (Hospitalization)
  Sender: FDA-Public Use
  Company Number: None

PATIENT
  Age: 31 Year
  Sex: Female

DRUGS (23)
  1. DEXAMETHASONE [Suspect]
     Active Substance: DEXAMETHASONE
     Indication: Product used for unknown indication
     Dosage: 8 MG AU TOTAL , THERAPY START DATE : NASK
     Route: 042
     Dates: end: 201606
  2. LIDOCAINE [Suspect]
     Active Substance: LIDOCAINE
     Indication: Product used for unknown indication
     Dosage: 1% ; IN TOTAL , UNIT DOSE : 127 MILLIGRAM , FREQUENCY TIME : 1 TOTAL , THERAPY START DATE : NASK
     Route: 042
     Dates: end: 201606
  3. CLONIDINE [Suspect]
     Active Substance: CLONIDINE
     Indication: Product used for unknown indication
     Dosage: UNIT DOSE : 45 MICROGRAM  , FREQUENCY TIME : 3 DAY , THERAPY START DATE : NASK
     Route: 042
     Dates: end: 201606
  4. ZINACEF [Suspect]
     Active Substance: CEFUROXIME SODIUM
     Indication: Product used for unknown indication
     Dosage: 7500 MG AU TOTAL , UNIT DOSE : 3 GRAM  , FREQUENCY TIME :1 DAY  , THERAPY START DATE : NASK
     Route: 042
     Dates: end: 201606
  5. METRONIDAZOLE [Suspect]
     Active Substance: METRONIDAZOLE
     Indication: Product used for unknown indication
     Dosage: 2500 MG AU TOTAL , UNIT DOSE : 500 MG  , FREQUENCY TIME : 2 DAY  , THERAPY START DATE : NASK
     Route: 042
     Dates: end: 201606
  6. PROPOFOL [Suspect]
     Active Substance: PROPOFOL
     Indication: Product used for unknown indication
     Dosage: IN TOTAL , UNIT DOSE : 400 MG   , FREQUENCY TIME : 1 TOTAL  , THERAPY START DATE : NASK
     Route: 042
     Dates: end: 201606
  7. KETAMINE [Suspect]
     Active Substance: KETAMINE
     Indication: Product used for unknown indication
     Dosage: IN TOTAL , UNIT DOSE : 40 MG  , FREQUENCY TIME : 1 TOTAL  , THERAPY START DATE : NASK
     Route: 042
     Dates: end: 201606
  8. SUFENTA [Suspect]
     Active Substance: SUFENTANIL CITRATE
     Indication: Product used for unknown indication
     Dosage: 30 UG IN SEVERAL TIMES , THERAPY START DATE : NASK
     Route: 042
     Dates: end: 201606
  9. ROCURONIUM BROMIDE [Suspect]
     Active Substance: ROCURONIUM BROMIDE
     Indication: Product used for unknown indication
     Dosage: IN TOTAL , UNIT DOSE : 68 MG  , FREQUENCY TIME : 1 TOTAL  , THERAPY START DATE : NASK
     Route: 042
     Dates: end: 201606
  10. SUCCINYLCHOLINE CHLORIDE [Suspect]
     Active Substance: SUCCINYLCHOLINE CHLORIDE
     Indication: Product used for unknown indication
     Dosage: IN TOTAL , UNIT DOSE : 150 MICROGRAM , FREQUENCY TIME : 1 TOTAL , THERAPY START DATE : NASK
     Route: 042
     Dates: end: 201606
  11. DROPERIDOL [Suspect]
     Active Substance: DROPERIDOL
     Indication: Product used for unknown indication
     Dosage: 0.5 MG PER DOSE (1 MG IN TOTAL),  THERAPY START DATE : NASK
     Route: 042
     Dates: end: 201606
  12. MORPHINE [Suspect]
     Active Substance: MORPHINE
     Indication: Product used for unknown indication
     Dosage: UNIT DOSE :3 MG   , FREQUENCY TIME : 2 DAY , THERAPY START DATE : NASK
     Route: 042
     Dates: end: 201606
  13. ZOFRAN [Suspect]
     Active Substance: ONDANSETRON HYDROCHLORIDE
     Indication: Product used for unknown indication
     Dosage: 4 MG IV  (12 MG AU TOTAL) , THERAPY START DATE : NASK
     Route: 042
     Dates: end: 201606
  14. ZOFRAN [Suspect]
     Active Substance: ONDANSETRON HYDROCHLORIDE
     Dosage: AS NECESSARY , UNIT DOSE : 4 MG , FREQUENCY TIME : 3 AS REQUIRED
     Dates: start: 201606, end: 2016
  15. METHYLENE BLUE ANHYDROUS [Suspect]
     Active Substance: METHYLENE BLUE ANHYDROUS
     Indication: Product used for unknown indication
     Dosage: IN TOTAL , UNIT DOSE : 100 MG  , FREQUENCY TIME :1 TOTAL  , THERAPY END DATE : NASK
     Route: 042
     Dates: end: 201606
  16. INDOCYANINE GREEN [Suspect]
     Active Substance: INDOCYANINE GREEN
     Indication: Product used for unknown indication
     Dosage: IN TOTAL ,  INDOCYANINE ZELENYI PULSION , UNIT DOSE : 7.5 MG , FREQUENCY TIME : 1 TOTAL , THERAPY EN
     Route: 042
     Dates: end: 201606
  17. PERFALGAN [Concomitant]
     Active Substance: ACETAMINOPHEN
     Indication: Product used for unknown indication
     Route: 042
  18. BRIDION [Concomitant]
     Active Substance: SUGAMMADEX
     Indication: Product used for unknown indication
     Route: 042
  19. NEXIUM [Concomitant]
     Active Substance: ESOMEPRAZOLE MAGNESIUM
     Indication: Product used for unknown indication
     Route: 042
  20. NOVORAPID [Concomitant]
     Active Substance: INSULIN ASPART
     Indication: Product used for unknown indication
     Route: 058
  21. ENOXAPARIN SODIUM [Concomitant]
     Active Substance: ENOXAPARIN SODIUM
     Indication: Product used for unknown indication
     Dosage: 2 INJECTIONS
     Dates: start: 20160614, end: 20160614
  22. LITHIUM [Concomitant]
     Active Substance: LITHIUM
     Indication: Product used for unknown indication
     Dosage: 1000 MG  (POSOLOGIE EXACTE INCONNUE)
  23. SEROQUEL [Concomitant]
     Active Substance: QUETIAPINE FUMARATE
     Indication: Product used for unknown indication
     Dosage: 200 MG (POSOLOGIE EXACTE INCONNUE)

REACTIONS (2)
  - Thrombocytopenia [Recovered/Resolved]
  - Liver function test increased [Recovered/Resolved]

NARRATIVE: CASE EVENT DATE: 20160614
